FAERS Safety Report 12670883 (Version 1)
Quarter: 2016Q3

REPORT INFORMATION
  Report Type: Spontaneous
  Country: US (occurrence: None)
  Receive Date: 20160819
  Receipt Date: 20160819
  Transmission Date: 20161109
  Serious: Yes (Life-Threatening, Hospitalization)
  Sender: FDA-Public Use
  Company Number: None

PATIENT
  Age: 64 Year
  Sex: Male

DRUGS (1)
  1. TACROLIMUS CAP 1MG [Suspect]
     Active Substance: TACROLIMUS
     Indication: TESTICULAR DISORDER
     Route: 048

REACTIONS (5)
  - Therapy change [None]
  - Pneumonia [None]
  - Vision blurred [None]
  - Staphylococcal infection [None]
  - Tremor [None]

NARRATIVE: CASE EVENT DATE: 20160818
